FAERS Safety Report 9196845 (Version 2)
Quarter: 2013Q3

REPORT INFORMATION
  Report Type: Spontaneous
  Country: JP (occurrence: JP)
  Receive Date: 20130328
  Receipt Date: 20130918
  Transmission Date: 20140515
  Serious: Yes (Other)
  Sender: FDA-Public Use
  Company Number: PHHY2013JP030385

PATIENT
  Sex: 0

DRUGS (1)
  1. TASIGNA [Suspect]
     Route: 048

REACTIONS (1)
  - Lung disorder [Unknown]
